FAERS Safety Report 12121019 (Version 1)
Quarter: 2016Q1

REPORT INFORMATION
  Report Type: Spontaneous
  Country: JP (occurrence: JP)
  Receive Date: 20160226
  Receipt Date: 20160226
  Transmission Date: 20160526
  Serious: Yes (Other)
  Sender: FDA-Public Use
  Company Number: JP-JNJFOC-20160216605

PATIENT

DRUGS (6)
  1. PREDNISOLONE. [Concomitant]
     Active Substance: PREDNISOLONE
     Route: 065
  2. INFLIXIMAB, RECOMBINANT [Suspect]
     Active Substance: INFLIXIMAB
     Indication: COLITIS ULCERATIVE
     Dosage: (0,2 AND 6) INDUCTION THERAPY
     Route: 042
  3. 6-MP [Concomitant]
     Active Substance: MERCAPTOPURINE
     Route: 065
  4. SULFASALAZINE. [Concomitant]
     Active Substance: SULFASALAZINE
     Route: 065
  5. 5-ASA [Concomitant]
     Active Substance: MESALAMINE
     Route: 065
  6. AZATHIOPRINE. [Concomitant]
     Active Substance: AZATHIOPRINE
     Route: 065

REACTIONS (5)
  - Pneumonia [Unknown]
  - Infusion related reaction [Unknown]
  - Cytomegalovirus infection [Unknown]
  - Rash [Unknown]
  - Pyrexia [Unknown]
